FAERS Safety Report 11936787 (Version 1)
Quarter: 2016Q1

REPORT INFORMATION
  Report Type: Spontaneous
  Country: US (occurrence: US)
  Receive Date: 20160121
  Receipt Date: 20160121
  Transmission Date: 20160526
  Serious: Yes (Other)
  Sender: FDA-Public Use
  Company Number: US-PFIZER INC-2016031067

PATIENT
  Age: 58 Year
  Sex: Male
  Weight: 58.5 kg

DRUGS (5)
  1. XELJANZ [Suspect]
     Active Substance: TOFACITINIB CITRATE
     Indication: RHEUMATOID ARTHRITIS
     Dosage: 5 MG, 2X/DAY
     Route: 048
     Dates: start: 20151111
  2. METHOTREXATE [Suspect]
     Active Substance: METHOTREXATE
     Dosage: 2 MG, UNK
  3. FOLIC ACID. [Concomitant]
     Active Substance: FOLIC ACID
     Dosage: UNK
  4. METHOTREXATE [Suspect]
     Active Substance: METHOTREXATE
     Dosage: 6 MG, UNK
  5. ALEVE [Concomitant]
     Active Substance: NAPROXEN SODIUM
     Dosage: UNK

REACTIONS (2)
  - Musculoskeletal stiffness [Unknown]
  - Condition aggravated [Unknown]

NARRATIVE: CASE EVENT DATE: 201512
